FAERS Safety Report 8214803-9 (Version None)
Quarter: 2012Q1

REPORT INFORMATION
  Report Type: 
  Country: None (occurrence: None)
  Receive Date: 20120316
  Receipt Date: 20120309
  Transmission Date: 20120608
  Serious: Yes (Other)
  Sender: FDA-Public Use
  Company Number: GB-JNJFOC-20120305960

PATIENT
  Sex: Female

DRUGS (2)
  1. RISPERDAL [Suspect]
     Indication: PSYCHOTIC DISORDER
     Dosage: 1 MG AM AND 2 MG PM
     Route: 048
  2. HALDOL [Suspect]
     Indication: PSYCHOTIC DISORDER
     Dosage: FROM 5 MG UP TO 30 MG DAILY
     Route: 048

REACTIONS (2)
  - BLOOD PROLACTIN INCREASED [None]
  - DRUG INEFFECTIVE [None]
